FAERS Safety Report 23204683 (Version 2)
Quarter: 2023Q4

REPORT INFORMATION
  Report Type: Spontaneous
  Country: US (occurrence: US)
  Receive Date: 20231120
  Receipt Date: 20231121
  Transmission Date: 20240109
  Serious: Yes (Other)
  Sender: FDA-Public Use
  Company Number: US-APOTEX-2023AP016749

PATIENT
  Sex: Female

DRUGS (8)
  1. CELECOXIB [Suspect]
     Active Substance: CELECOXIB
     Indication: Product used for unknown indication
     Dosage: 200 MILLIGRAM, QD
     Route: 065
     Dates: start: 20170726, end: 20170908
  2. CELECOXIB [Suspect]
     Active Substance: CELECOXIB
     Dosage: 200 MILLIGRAM, QD
     Route: 065
     Dates: start: 2017, end: 2018
  3. PEMBROLIZUMAB [Concomitant]
     Active Substance: PEMBROLIZUMAB
     Indication: Metastases to nasal sinuses
     Dosage: 2 MILLIGRAM/KILOGRAM, Q.3W
     Route: 065
     Dates: start: 20170503, end: 20170705
  4. PEMBROLIZUMAB [Concomitant]
     Active Substance: PEMBROLIZUMAB
     Indication: Nasal sinus cancer
     Dosage: UNK
     Route: 065
     Dates: start: 20170726, end: 2017
  5. PEMBROLIZUMAB [Concomitant]
     Active Substance: PEMBROLIZUMAB
     Dosage: 200 MILLIGRAM, Q.3W
     Route: 065
     Dates: start: 20170816, end: 20170908
  6. PEMBROLIZUMAB [Concomitant]
     Active Substance: PEMBROLIZUMAB
     Dosage: UNK
     Route: 065
     Dates: start: 20181206, end: 20190228
  7. IPILIMUMAB [Concomitant]
     Active Substance: IPILIMUMAB
     Indication: Nasal sinus cancer
     Dosage: 1 MILLIGRAM/KILOGRAM, Q.3W
     Route: 065
     Dates: start: 20170816, end: 20170908
  8. IPILIMUMAB [Concomitant]
     Active Substance: IPILIMUMAB
     Indication: Metastases to nasal sinuses

REACTIONS (1)
  - Autoimmune hepatitis [Recovering/Resolving]
